FAERS Safety Report 9405146 (Version 1)
Quarter: 2013Q3

REPORT INFORMATION
  Report Type: Report from Study
  Country: US (occurrence: US)
  Receive Date: 20130717
  Receipt Date: 20130717
  Transmission Date: 20140515
  Serious: Yes (Hospitalization)
  Sender: FDA-Public Use
  Company Number: US-PFIZER INC-2013205301

PATIENT
  Age: 63 Year
  Sex: Male
  Weight: 91.5 kg

DRUGS (11)
  1. SUNITINIB MALATE [Suspect]
     Indication: METASTATIC RENAL CELL CARCINOMA
     Dosage: 37.5 MG, 1X/DAY, 2WKS ON, 1 WK OFF
     Route: 048
     Dates: start: 20130423, end: 20130708
  2. GEMCITABINE HYDROCHLORIDE [Suspect]
     Indication: METASTATIC RENAL CELL CARCINOMA
     Dosage: 1000 MG/M2, 1X/DAY 1.8
     Route: 042
     Dates: start: 20130423, end: 20130708
  3. ATIVAN [Concomitant]
  4. COLACE [Concomitant]
  5. SENNA [Concomitant]
  6. MARINOL [Concomitant]
  7. LOVENOX [Concomitant]
  8. MEGACE [Concomitant]
  9. REGLAN [Concomitant]
  10. PRILOSEC [Concomitant]
  11. PREDNISONE [Concomitant]

REACTIONS (2)
  - Nausea [Unknown]
  - Dehydration [Unknown]
